FAERS Safety Report 4549127-4 (Version None)
Quarter: 2004Q4

REPORT INFORMATION
  Report Type: 
  Country: None (occurrence: None)
  Receive Date: 20041227
  Receipt Date: 20040921
  Transmission Date: 20050328
  Serious: No
  Sender: FDA-Public Use
  Company Number: 04P-163-0273929-00

PATIENT
  Age: 37 Year
  Sex: Male
  Weight: 120 kg

DRUGS (13)
  1. HUMIRA [Suspect]
     Indication: TONGUE ULCERATION
     Dosage: 40 MG, 2 IN 1 M, SUBCUTANEOUS
     Route: 058
     Dates: start: 20040920
  2. PREDNISONE [Concomitant]
  3. GABAPENTIN [Concomitant]
  4. MONTELUKAST SODIUM [Concomitant]
  5. PANTOPRAZOLE [Concomitant]
  6. OXYCOCET [Concomitant]
  7. LIDOCAINE [Concomitant]
  8. ALENDRONATE SODIUM [Concomitant]
  9. CITRACAL + D [Concomitant]
  10. METHOTREXATE [Concomitant]
  11. TRAZODONE HCL [Concomitant]
  12. BUSPIRONE HCL [Concomitant]
  13. SILDENAFIL CITRATE [Concomitant]

REACTIONS (1)
  - INJECTION SITE STINGING [None]
